FAERS Safety Report 5337015-5 (Version None)
Quarter: 2007Q2

REPORT INFORMATION
  Report Type: 
  Country: None (occurrence: None)
  Receive Date: 20070529
  Receipt Date: 20070524
  Transmission Date: 20071010
  Serious: Yes (Hospitalization)
  Sender: FDA-Public Use
  Company Number: HQWYE092119MAR07

PATIENT
  Sex: Male

DRUGS (6)
  1. CORDARONE [Suspect]
     Indication: VENTRICULAR ARRHYTHMIA
     Route: 042
     Dates: start: 20070110, end: 20070127
  2. RAMIPRIL [Concomitant]
     Indication: HYPERTENSION
     Dosage: 2.5 MG (INTERVAL NOT SPECIFIED)
     Route: 048
  3. LYRICA [Concomitant]
     Indication: NEURALGIA
     Dosage: 100 MG (INTERVAL NOT SPECIFIED)
     Route: 048
  4. ALDACTONE [Concomitant]
     Indication: CARDIAC FAILURE
     Dosage: 50 MG (INTERVAL NOT SPECIFIED)
     Route: 048
  5. CORDARONE [Suspect]
     Dosage: UNKNOWN
     Route: 065
     Dates: start: 20070101
  6. ZYVOX [Concomitant]
     Dosage: UNKNOWN
     Route: 065

REACTIONS (3)
  - CONFUSIONAL STATE [None]
  - ENCEPHALOPATHY [None]
  - MENTAL DISORDER DUE TO A GENERAL MEDICAL CONDITION [None]
